FAERS Safety Report 6968716-0 (Version None)
Quarter: 2010Q3

REPORT INFORMATION
  Report Type: 
  Country: None (occurrence: None)
  Receive Date: 20100907
  Receipt Date: 20100826
  Transmission Date: 20110219
  Serious: Yes (Other)
  Sender: FDA-Public Use
  Company Number: JP-MERCK-1007USA00947

PATIENT
  Age: 76 Year
  Sex: Female

DRUGS (8)
  1. PEPCID RPD [Suspect]
     Route: 048
     Dates: end: 20100601
  2. PEPCID RPD [Suspect]
     Dosage: 10 MG, UID/QD
     Route: 048
     Dates: start: 20100601
  3. OPALMON [Concomitant]
     Route: 048
  4. RYTHMODAN [Concomitant]
     Route: 048
     Dates: end: 20100601
  5. POLYFUL [Concomitant]
     Route: 048
     Dates: end: 20100601
  6. BLOPRESS [Concomitant]
     Route: 048
  7. CRESTOR [Concomitant]
     Route: 048
  8. NORVASC [Concomitant]
     Route: 048
     Dates: start: 20100601

REACTIONS (1)
  - RENAL IMPAIRMENT [None]
